FAERS Safety Report 12599547 (Version 1)
Quarter: 2016Q3

REPORT INFORMATION
  Report Type: Spontaneous
  Country: IT (occurrence: IT)
  Receive Date: 20160727
  Receipt Date: 20160727
  Transmission Date: 20161109
  Serious: Yes (Other)
  Sender: FDA-Public Use
  Company Number: IT-FRESENIUS KABI-FK201604795

PATIENT

DRUGS (1)
  1. LEVETIRACETAM (MANUFACTURER UNKNOWN) [Suspect]
     Active Substance: LEVETIRACETAM
     Indication: DRUG THERAPY
     Route: 065

REACTIONS (3)
  - Condition aggravated [Unknown]
  - Paradoxical drug reaction [Unknown]
  - Seizure [Unknown]
